FAERS Safety Report 5694399-6 (Version None)
Quarter: 2008Q2

REPORT INFORMATION
  Report Type: 
  Country: None (occurrence: None)
  Receive Date: 20080402
  Receipt Date: 20080320
  Transmission Date: 20081010
  Serious: No
  Sender: FDA-Public Use
  Company Number: 2008-174086-NL

PATIENT
  Age: 61 Year
  Sex: Female

DRUGS (5)
  1. VECURONIUM BROMIDE [Suspect]
     Indication: INDUCTION OF ANAESTHESIA
     Dosage: INTRAVENOUS (NOS)
     Route: 042
  2. PROPOFOL [Suspect]
     Indication: INDUCTION OF ANAESTHESIA
     Dosage: INTRAVENOUS (NOS)
     Route: 042
  3. MEPIVACAINE HCL [Suspect]
     Indication: EPIDURAL ANAESTHESIA
  4. DIAZEPAM [Concomitant]
  5. PENTOBARBITAL CAP [Concomitant]

REACTIONS (2)
  - HOLMES-ADIE PUPIL [None]
  - HYPERTENSION [None]
